FAERS Safety Report 10494389 (Version 1)
Quarter: 2014Q4

REPORT INFORMATION
  Report Type: Spontaneous
  Country: US (occurrence: US)
  Receive Date: 20141003
  Receipt Date: 20141003
  Transmission Date: 20150528
  Serious: Yes (Other)
  Sender: FDA-Public Use
  Company Number: US-SA-2014SA133476

PATIENT
  Age: 74 Year
  Sex: Female

DRUGS (5)
  1. LANTUS SOLOSTAR [Suspect]
     Active Substance: INSULIN GLARGINE
     Indication: TYPE 2 DIABETES MELLITUS
     Dosage: DOSE:32 UNIT(S)
     Route: 065
  2. NOVOLOG [Concomitant]
     Active Substance: INSULIN ASPART
  3. LANTUS SOLOSTAR [Suspect]
     Active Substance: INSULIN GLARGINE
     Indication: TYPE 2 DIABETES MELLITUS
     Dosage: DOSE:32 UNIT(S)
     Route: 065
  4. SOLOSTAR [Concomitant]
     Active Substance: DEVICE
     Route: 065
  5. SOLOSTAR [Concomitant]
     Active Substance: DEVICE
     Route: 065

REACTIONS (8)
  - Expired product administered [Unknown]
  - Body height decreased [Unknown]
  - Blood glucose abnormal [Unknown]
  - Knee arthroplasty [Unknown]
  - Rheumatoid arthritis [Unknown]
  - Drug administration error [Unknown]
  - Liquid product physical issue [Unknown]
  - Shoulder arthroplasty [Unknown]

NARRATIVE: CASE EVENT DATE: 201403
